FAERS Safety Report 12235633 (Version 4)
Quarter: 2016Q3

REPORT INFORMATION
  Report Type: Spontaneous
  Country: US (occurrence: US)
  Receive Date: 20160404
  Receipt Date: 20160803
  Transmission Date: 20161109
  Serious: Yes (Death, Hospitalization, Other)
  Sender: FDA-Public Use
  Company Number: US-009507513-1604USA001087

PATIENT
  Sex: Female
  Weight: 99.77 kg

DRUGS (3)
  1. NUVARING [Suspect]
     Active Substance: ETHINYL ESTRADIOL\ETONOGESTREL
     Indication: CONTRACEPTION
     Dosage: 1 DF, UNK
     Route: 067
     Dates: start: 20140126, end: 201404
  2. MOTRIN [Concomitant]
     Active Substance: IBUPROFEN
     Indication: ARTHRALGIA
     Dosage: 500 MG, UNKNOWN
     Route: 048
     Dates: start: 201402
  3. MOTRIN [Concomitant]
     Active Substance: IBUPROFEN
     Indication: ARTHRALGIA

REACTIONS (27)
  - Ischaemic stroke [Fatal]
  - Neurogenic shock [Fatal]
  - Disseminated intravascular coagulation [Fatal]
  - Subcutaneous haematoma [Unknown]
  - Pulmonary infarction [Unknown]
  - Pneumonia [Unknown]
  - Anaemia [Unknown]
  - Deep vein thrombosis [Unknown]
  - Haemorrhage intracranial [Unknown]
  - Respiratory failure [Unknown]
  - Pancreatitis [Unknown]
  - Pulmonary embolism [Fatal]
  - Thrombocytopenia [Unknown]
  - Lower gastrointestinal haemorrhage [Unknown]
  - Intraventricular haemorrhage [Fatal]
  - Polycystic ovaries [Unknown]
  - Vitamin D deficiency [Unknown]
  - Cardio-respiratory arrest [Fatal]
  - Shock haemorrhagic [Fatal]
  - Tobacco abuse [Unknown]
  - Aspiration [Unknown]
  - Obesity [Unknown]
  - Atrial fibrillation [Unknown]
  - Sepsis [Unknown]
  - Acute kidney injury [Unknown]
  - Metabolic acidosis [Unknown]
  - Hypersensitivity [Unknown]

NARRATIVE: CASE EVENT DATE: 201403
